FAERS Safety Report 5483126-3 (Version None)
Quarter: 2007Q4

REPORT INFORMATION
  Report Type: 
  Country: None (occurrence: None)
  Receive Date: 20071011
  Receipt Date: 20071001
  Transmission Date: 20080405
  Serious: Yes (Death)
  Sender: FDA-Public Use
  Company Number: JP-MERCK-0709USA01452

PATIENT
  Age: 83 Year
  Sex: Female

DRUGS (6)
  1. STROMECTOL [Suspect]
     Indication: ACARODERMATITIS
     Route: 048
     Dates: start: 20060905, end: 20060905
  2. TAGAMET [Suspect]
     Indication: GASTRITIS
     Route: 048
     Dates: start: 20060131, end: 20060914
  3. BASEN [Concomitant]
     Indication: DIABETES MELLITUS
     Route: 048
     Dates: start: 20060425, end: 20060914
  4. NORVASC [Concomitant]
     Indication: HYPERTENSION
     Route: 048
     Dates: start: 20060429, end: 20060914
  5. PREDNISOLONE [Concomitant]
     Indication: PEMPHIGOID
     Route: 048
     Dates: start: 20060131, end: 20060915
  6. BAKTAR [Suspect]
     Indication: PNEUMOCYSTIS JIROVECI PNEUMONIA
     Route: 048
     Dates: start: 20060517, end: 20060914

REACTIONS (3)
  - DISSEMINATED INTRAVASCULAR COAGULATION [None]
  - MULTI-ORGAN FAILURE [None]
  - TOXIC EPIDERMAL NECROLYSIS [None]
